FAERS Safety Report 6221580-X (Version None)
Quarter: 2009Q2

REPORT INFORMATION
  Report Type: 
  Country: None (occurrence: None)
  Receive Date: 20090610
  Receipt Date: 20080901
  Transmission Date: 20091009
  Serious: Yes (Other)
  Sender: FDA-Public Use
  Company Number: FR-JNJFOC-20080704040

PATIENT
  Age: 48 Year
  Sex: Female

DRUGS (8)
  1. EPITOMAX [Suspect]
     Route: 065
  2. EPITOMAX [Suspect]
     Route: 065
  3. EPITOMAX [Suspect]
     Indication: MIGRAINE PROPHYLAXIS
     Route: 065
  4. LAROXYL [Concomitant]
     Indication: DRUG USE FOR UNKNOWN INDICATION
  5. PROPRANOLOL HYDROCHLORIDE [Concomitant]
     Indication: DRUG USE FOR UNKNOWN INDICATION
  6. EFFEXOR [Concomitant]
     Indication: ANTIDEPRESSANT THERAPY
  7. NARAMIG [Concomitant]
     Indication: DRUG USE FOR UNKNOWN INDICATION
  8. PROFENID [Concomitant]
     Indication: DRUG USE FOR UNKNOWN INDICATION

REACTIONS (6)
  - BRONCHITIS [None]
  - COUGH [None]
  - INFLUENZA [None]
  - MIDDLE INSOMNIA [None]
  - RHINITIS [None]
  - STRESS URINARY INCONTINENCE [None]
